FAERS Safety Report 9883834 (Version 1)
Quarter: 2014Q1

REPORT INFORMATION
  Report Type: Spontaneous
  Country: US (occurrence: US)
  Receive Date: 20140210
  Receipt Date: 20140210
  Transmission Date: 20141002
  Serious: No
  Sender: FDA-Public Use
  Company Number: US-BAYER-2014-015701

PATIENT
  Age: 44 Year
  Sex: Female

DRUGS (1)
  1. CLIMARA PRO [Suspect]
     Indication: HORMONE LEVEL ABNORMAL
     Dosage: UNK
     Route: 062
     Dates: start: 2013

REACTIONS (1)
  - Application site rash [None]
